FAERS Safety Report 5388477-9 (Version None)
Quarter: 2007Q3

REPORT INFORMATION
  Report Type: 
  Country: None (occurrence: None)
  Receive Date: 20070711
  Receipt Date: 20070626
  Transmission Date: 20080115
  Serious: Yes (Hospitalization)
  Sender: FDA-Public Use
  Company Number: FSC_00133_2007

PATIENT
  Age: 69 Year
  Sex: Female

DRUGS (2)
  1. VERAPAMIL [Suspect]
     Dosage: (80 MG TID)
  2. SIMVASTATIN [Suspect]
     Dosage: (20 MG QD)

REACTIONS (3)
  - DRUG INTERACTION INHIBITION [None]
  - DRUG LEVEL INCREASED [None]
  - RHABDOMYOLYSIS [None]
